FAERS Safety Report 20329202 (Version 4)
Quarter: 2022Q2

REPORT INFORMATION
  Report Type: Spontaneous
  Country: PL (occurrence: PL)
  Receive Date: 20220112
  Receipt Date: 20220405
  Transmission Date: 20220721
  Serious: Yes (Death, Hospitalization, Other)
  Sender: FDA-Public Use
  Company Number: PL-BIOGEN-2022BI01085982

PATIENT
  Age: 1 Year
  Sex: Male

DRUGS (2)
  1. SPINRAZA [Suspect]
     Active Substance: NUSINERSEN
     Indication: Spinal muscular atrophy
     Route: 065
     Dates: start: 20201020, end: 20210819
  2. VITAMIN D3 [Concomitant]
     Active Substance: CHOLECALCIFEROL
     Indication: Product used for unknown indication
     Route: 065

REACTIONS (14)
  - Cardiac arrest [Fatal]
  - Agonal respiration [Fatal]
  - Neonatal respiratory failure [Unknown]
  - Malnutrition [Unknown]
  - Anaemia neonatal [Unknown]
  - Neonatal multi-organ failure [Unknown]
  - Hypovolaemic shock [Unknown]
  - Body mass index decreased [Unknown]
  - Atelectasis neonatal [Unknown]
  - Pulmonary oedema neonatal [Unknown]
  - Congestive hepatopathy [Unknown]
  - Bronchiolitis [Unknown]
  - Pneumonia [Unknown]
  - Upper respiratory tract infection [Unknown]

NARRATIVE: CASE EVENT DATE: 20211211
